FAERS Safety Report 4807237-8 (Version None)
Quarter: 2005Q4

REPORT INFORMATION
  Report Type: 
  Country: None (occurrence: None)
  Receive Date: 20051020
  Receipt Date: 20051020
  Transmission Date: 20060501
  Serious: Yes (Life-Threatening)
  Sender: FDA-Public Use
  Company Number: None

PATIENT
  Sex: Male
  Weight: 74.3899 kg

DRUGS (2)
  1. DOXIL [Suspect]
     Indication: HEPATIC NEOPLASM MALIGNANT
     Dosage: 75MG  Q28DAYS  IV DRIP
     Route: 041
     Dates: start: 20050830, end: 20050914
  2. TOPOTECAN  1.5MG/M2 [Suspect]
     Indication: HEPATIC NEOPLASM MALIGNANT
     Dosage: 2.8  DAY 1,8,15 IV DRIP
     Route: 041
     Dates: start: 20050830, end: 20050914

REACTIONS (2)
  - NEUTROPENIA [None]
  - THROMBOCYTOPENIA [None]
